FAERS Safety Report 16627711 (Version 3)
Quarter: 2020Q4

REPORT INFORMATION
  Report Type: Spontaneous
  Country: JP (occurrence: JP)
  Receive Date: 20190724
  Receipt Date: 20201105
  Transmission Date: 20210113
  Serious: Yes (Other)
  Sender: FDA-Public Use
  Company Number: JP-SHIRE-JP201923423

PATIENT
  Age: 78 Year
  Sex: Male

DRUGS (1)
  1. 405 (LANTHANUM CARBONATE) [Suspect]
     Active Substance: LANTHANUM CARBONATE
     Indication: CHRONIC KIDNEY DISEASE
     Dosage: UNK
     Route: 065

REACTIONS (2)
  - Gastric cancer [Unknown]
  - Product residue present [Unknown]
